FAERS Safety Report 13918546 (Version 1)
Quarter: 2017Q3

REPORT INFORMATION
  Report Type: Report from Study
  Country: CL (occurrence: CL)
  Receive Date: 20170829
  Receipt Date: 20170829
  Transmission Date: 20171127
  Serious: Yes (Other)
  Sender: FDA-Public Use
  Company Number: CL-EMD SERONO-E2B_80074153

PATIENT
  Sex: Male

DRUGS (1)
  1. REBIF [Suspect]
     Active Substance: INTERFERON BETA-1A
     Indication: MULTIPLE SCLEROSIS
     Route: 058
     Dates: start: 20170316, end: 20170731

REACTIONS (4)
  - Liver injury [Unknown]
  - Depression [Unknown]
  - Disease progression [Unknown]
  - Influenza like illness [Unknown]

NARRATIVE: CASE EVENT DATE: 2017
